FAERS Safety Report 4442311-X (Version None)
Quarter: 2004Q3

REPORT INFORMATION
  Report Type: 
  Country: None (occurrence: None)
  Receive Date: 20040903
  Receipt Date: 20040715
  Transmission Date: 20050211
  Serious: Yes (Other)
  Sender: FDA-Public Use
  Company Number: 2004UW14683

PATIENT
  Sex: Female

DRUGS (3)
  1. CRESTOR [Suspect]
  2. COUMADIN [Concomitant]
  3. PLAVIX [Concomitant]

REACTIONS (5)
  - CONTUSION [None]
  - HEADACHE [None]
  - METRORRHAGIA [None]
  - PSORIASIS [None]
  - RECTAL DISCHARGE [None]
